FAERS Safety Report 19126905 (Version 1)
Quarter: 2021Q2

REPORT INFORMATION
  Report Type: Spontaneous
  Country: US (occurrence: US)
  Receive Date: 20210412
  Receipt Date: 20210412
  Transmission Date: 20210717
  Serious: Yes (Death)
  Sender: FDA-Public Use
  Company Number: None

PATIENT
  Age: 51 Year
  Sex: Male

DRUGS (16)
  1. REPATHA [Suspect]
     Active Substance: EVOLOCUMAB
     Indication: METABOLIC DISORDER
     Dosage: 1 PEN
     Route: 058
     Dates: start: 20160602, end: 20210310
  2. OMEGA?3 ACIDS [Concomitant]
     Active Substance: OMEGA-3 FATTY ACIDS
  3. RESVERATROL [Concomitant]
     Active Substance: DIETARY SUPPLEMENT\RESVERATROL
  4. VITA?PLUS E [Concomitant]
  5. MAGNESIUM [Concomitant]
     Active Substance: MAGNESIUM
  6. GLEOSTINE [Suspect]
     Active Substance: LOMUSTINE
     Indication: BRAIN NEOPLASM MALIGNANT
     Dosage: TAKE ONE 100 MG CAPSULE,2 40 MG CAPSULES, AND 10 MG CAPSULE EVERY 6 WEEKS (190 MG TOTAL DOSE)
     Route: 048
     Dates: start: 20210219, end: 20210310
  7. VITAMIN D3 [Concomitant]
     Active Substance: CHOLECALCIFEROL
  8. ZINC. [Concomitant]
     Active Substance: ZINC
  9. COENZYME Q10 [Concomitant]
     Active Substance: DIETARY SUPPLEMENT\UBIDECARENONE
  10. ASPIRIN. [Concomitant]
     Active Substance: ASPIRIN
  11. CURCUMIN [Concomitant]
     Active Substance: CURCUMIN
  12. CRESTOR [Concomitant]
     Active Substance: ROSUVASTATIN CALCIUM
  13. DHEA [Concomitant]
     Active Substance: PRASTERONE
  14. REPATHA [Suspect]
     Active Substance: EVOLOCUMAB
     Indication: LIPOPROTEIN ABNORMAL
     Dosage: 1 PEN
     Route: 058
     Dates: start: 20160602, end: 20210310
  15. VITAMIN B COMPLEX [Concomitant]
     Active Substance: CYANOCOBALAMIN\DEXPANTHENOL\NIACINAMIDE\PYRIDOXINE HYDROCHLORIDE\RIBOFLAVIN 5^-PHOSPHATE SODIUM\THIAMINE HYDROCHLORIDE\VITAMIN B COMPLEX
  16. SELENIUM [Concomitant]
     Active Substance: SELENIUM

REACTIONS (1)
  - Death [None]

NARRATIVE: CASE EVENT DATE: 20210310
